FAERS Safety Report 9450701 (Version 2)
Quarter: 2013Q3

REPORT INFORMATION
  Report Type: Report from Study
  Country: NL (occurrence: NL)
  Receive Date: 20130809
  Receipt Date: 20130815
  Transmission Date: 20140515
  Serious: No
  Sender: FDA-Public Use
  Company Number: NL-B.I. PHARMACEUTICALS,INC./RIDGEFIELD-2013-RD-00706EU

PATIENT
  Age: 77 Year
  Sex: Male
  Weight: 76 kg

DRUGS (7)
  1. BI 1356 [Suspect]
     Indication: TYPE 2 DIABETES MELLITUS
     Dosage: 5 MG
     Dates: start: 20120214
  2. FENOTEROL/IPRATROPIUM [Concomitant]
     Indication: CHRONIC OBSTRUCTIVE PULMONARY DISEASE
     Dosage: 280 MCG
     Route: 055
  3. SERETIDE [Concomitant]
     Indication: CHRONIC OBSTRUCTIVE PULMONARY DISEASE
     Dosage: 300 MCG
     Route: 055
  4. SIMVASTATINE [Concomitant]
     Indication: LIPIDS ABNORMAL
     Dosage: 20 MG
     Route: 048
  5. TIOTROPIUM [Concomitant]
     Indication: CHRONIC OBSTRUCTIVE PULMONARY DISEASE
     Dosage: 18 MCG
     Route: 055
  6. VIDISIC GEL [Concomitant]
     Indication: CONJUNCTIVAL HAEMORRHAGE
     Dosage: 2 MG
     Route: 047
     Dates: start: 20120123
  7. METFORMIN [Concomitant]
     Indication: TYPE 2 DIABETES MELLITUS
     Dosage: 1700 MG
     Route: 048

REACTIONS (1)
  - Urine albumin/creatinine ratio increased [Not Recovered/Not Resolved]
